FAERS Safety Report 5806963-1 (Version None)
Quarter: 2008Q3

REPORT INFORMATION
  Report Type: 
  Country: None (occurrence: None)
  Receive Date: 20080702
  Receipt Date: 20071127
  Transmission Date: 20090109
  Serious: Yes (Other)
  Sender: FDA-Public Use
  Company Number: PROG00207035209

PATIENT
  Age: 36 Year
  Sex: Female
  Weight: 139 kg

DRUGS (4)
  1. PROMETRIUM [Suspect]
     Indication: PRENATAL CARE
     Dosage: 200 MILLIGRAM(S) BID ORAL DAILY DOSE:  400 MILLIGRAM(S)
     Route: 048
     Dates: start: 20071127, end: 20071207
  2. PROMETRIUM [Suspect]
     Indication: PROGESTERONE DECREASED
     Dosage: 200 MILLIGRAM(S) BID ORAL DAILY DOSE:  400 MILLIGRAM(S)
     Route: 048
     Dates: start: 20071127, end: 20071207
  3. PRENATAL VITAMINS (PRENATAL VITAMINS) [Concomitant]
  4. LEVOXYL [Concomitant]

REACTIONS (4)
  - ABORTION SPONTANEOUS [None]
  - DIZZINESS [None]
  - NAUSEA [None]
  - VOMITING [None]
